FAERS Safety Report 17259816 (Version 1)
Quarter: 2020Q1

REPORT INFORMATION
  Report Type: Spontaneous
  Country: DE (occurrence: DE)
  Receive Date: 20200110
  Receipt Date: 20200110
  Transmission Date: 20200409
  Serious: Yes (Other)
  Sender: FDA-Public Use
  Company Number: DE-TEVA-2020-DE-1165966

PATIENT
  Age: 60 Year
  Sex: Female

DRUGS (11)
  1. MIRTAZAPINE. [Suspect]
     Active Substance: MIRTAZAPINE
     Dates: start: 20181121
  2. VENLAFAXINE [Suspect]
     Active Substance: VENLAFAXINE HYDROCHLORIDE
     Dates: start: 20181122, end: 20181128
  3. LAMOTRIGIN [Suspect]
     Active Substance: LAMOTRIGINE
     Dosage: FOR MONTHS 150 MG
     Route: 065
  4. MIRTAZAPINE. [Suspect]
     Active Substance: MIRTAZAPINE
     Dosage: EINNAHME SEIT MONATEN
     Dates: end: 20181119
  5. REAGILA CARIPRAZIN [Suspect]
     Active Substance: CARIPRAZINE
     Dosage: 3 MG
     Route: 065
     Dates: start: 20181121
  6. VENLAFAXINE [Suspect]
     Active Substance: VENLAFAXINE HYDROCHLORIDE
     Dosage: 75 MG
     Dates: start: 20181121, end: 20181121
  7. MIRTAZAPINE. [Suspect]
     Active Substance: MIRTAZAPINE
     Dosage: 30 MG
     Route: 065
     Dates: start: 20181120, end: 20181120
  8. REAGILA CARIPRAZIN [Suspect]
     Active Substance: CARIPRAZINE
     Dates: start: 20181115, end: 20181120
  9. PIPAMPERON [Suspect]
     Active Substance: PIPAMPERONE HYDROCHLORIDE
     Dosage: 40 MG
     Route: 065
     Dates: start: 20181104
  10. L-THYROXIN [Concomitant]
     Active Substance: LEVOTHYROXINE SODIUM
     Dosage: INTAKE FOR YEARS  100 MICROGRAMS
  11. ASS 100 [Concomitant]
     Active Substance: ASPIRIN
     Dosage: 100 MG
     Dates: start: 20181108

REACTIONS (1)
  - Tongue discomfort [Recovered/Resolved]

NARRATIVE: CASE EVENT DATE: 20181124
